FAERS Safety Report 8153184-6 (Version None)
Quarter: 2012Q1

REPORT INFORMATION
  Report Type: 
  Country: None (occurrence: None)
  Receive Date: 20120221
  Receipt Date: 20120213
  Transmission Date: 20120608
  Serious: Yes (Other)
  Sender: FDA-Public Use
  Company Number: BR-JNJFOC-20120205878

PATIENT
  Age: 31 Year
  Sex: Female
  Weight: 55 kg

DRUGS (1)
  1. MICRONOR [Suspect]
     Indication: CONTRACEPTION
     Route: 048
     Dates: start: 20110101

REACTIONS (8)
  - URINARY TRACT INFECTION [None]
  - METRORRHAGIA [None]
  - BACK PAIN [None]
  - UTERINE SPASM [None]
  - PREMENSTRUAL SYNDROME [None]
  - URETHRAL PAIN [None]
  - IRRITABILITY [None]
  - VAGINAL HAEMORRHAGE [None]
